FAERS Safety Report 4520255-2 (Version None)
Quarter: 2004Q4

REPORT INFORMATION
  Report Type: 
  Country: None (occurrence: None)
  Receive Date: 20041025
  Receipt Date: 20040831
  Transmission Date: 20050328
  Serious: Yes (Hospitalization)
  Sender: FDA-Public Use
  Company Number: USA040877002

PATIENT
  Age: 18 Year
  Sex: Male

DRUGS (1)
  1. SYMBYAX [Suspect]

REACTIONS (2)
  - OVERDOSE [None]
  - SOMNOLENCE [None]
